FAERS Safety Report 9133791 (Version 1)
Quarter: 2013Q1

REPORT INFORMATION
  Report Type: Spontaneous
  Country: NL (occurrence: NL)
  Receive Date: 20130303
  Receipt Date: 20130303
  Transmission Date: 20140127
  Serious: Yes (Other)
  Sender: FDA-Public Use
  Company Number: NL-TEVA-388729ISR

PATIENT
  Age: 92 Year
  Sex: Male
  Weight: 78 kg

DRUGS (1)
  1. HALOPERIDOL PCH [Suspect]
     Indication: RESTLESSNESS
     Dosage: 1 MILLIGRAM DAILY;
     Route: 048
     Dates: start: 20130213, end: 20130214

REACTIONS (3)
  - Hallucination [Recovering/Resolving]
  - Motor dysfunction [Recovering/Resolving]
  - Loss of consciousness [Recovering/Resolving]
